FAERS Safety Report 7181358-X (Version None)
Quarter: 2010Q4

REPORT INFORMATION
  Report Type: 
  Country: None (occurrence: None)
  Receive Date: 20101221
  Receipt Date: 20100422
  Transmission Date: 20110411
  Serious: No
  Sender: FDA-Public Use
  Company Number: US-AMGEN-KDL413883

PATIENT

DRUGS (2)
  1. ENBREL [Suspect]
     Indication: RHEUMATOID ARTHRITIS
  2. CENTRUM [Suspect]
     Dosage: UNK UNK, QD
     Route: 048
     Dates: start: 20100325

REACTIONS (1)
  - THERAPEUTIC RESPONSE UNEXPECTED [None]
